FAERS Safety Report 14539638 (Version 3)
Quarter: 2018Q2

REPORT INFORMATION
  Report Type: Report from Study
  Country: US (occurrence: US)
  Receive Date: 20180216
  Receipt Date: 20180423
  Transmission Date: 20180711
  Serious: Yes (Hospitalization)
  Sender: FDA-Public Use
  Company Number: US-ASTRAZENECA-2018SE20489

PATIENT
  Age: 716 Month
  Sex: Female
  Weight: 64.2 kg

DRUGS (8)
  1. MUCINEX [Concomitant]
     Active Substance: GUAIFENESIN
     Indication: COUGH
     Dosage: 1TBSP DAILY
     Route: 048
     Dates: start: 201708
  2. PRILOSEC [Concomitant]
     Active Substance: OMEPRAZOLE MAGNESIUM
     Indication: GASTROOESOPHAGEAL REFLUX DISEASE
     Dosage: 20 MG
     Route: 048
     Dates: start: 20171204
  3. SENNA [Concomitant]
     Active Substance: SENNA LEAF\SENNOSIDES\SENNOSIDES A AND B
     Indication: CONSTIPATION
     Dosage: 2 TAB
     Route: 048
     Dates: start: 201709
  4. DURVALUMAB. [Suspect]
     Active Substance: DURVALUMAB
     Indication: NON-SMALL CELL LUNG CANCER
     Route: 042
     Dates: start: 20171107
  5. EFFEXOR [Concomitant]
     Active Substance: VENLAFAXINE HYDROCHLORIDE
     Indication: DEPRESSION
     Dosage: 37.5 MG
     Route: 048
     Dates: start: 20171027, end: 20180118
  6. MOCETINOSTAT [Suspect]
     Active Substance: MOCETINOSTAT
     Indication: NON-SMALL CELL LUNG CANCER
     Dosage: LEAD PERIOD
     Route: 048
     Dates: start: 20171031
  7. MOCETINOSTAT [Suspect]
     Active Substance: MOCETINOSTAT
     Indication: NON-SMALL CELL LUNG CANCER
     Route: 048
     Dates: start: 20171107
  8. ACETAMINOPHEN. [Concomitant]
     Active Substance: ACETAMINOPHEN
     Indication: HEADACHE
     Dosage: 325 MG
     Route: 048
     Dates: start: 201706

REACTIONS (1)
  - Seizure [Not Recovered/Not Resolved]

NARRATIVE: CASE EVENT DATE: 20180118
